FAERS Safety Report 19027045 (Version 1)
Quarter: 2021Q1

REPORT INFORMATION
  Report Type: Spontaneous
  Country: CN (occurrence: CN)
  Receive Date: 20210318
  Receipt Date: 20210318
  Transmission Date: 20210420
  Serious: Yes (Other)
  Sender: FDA-Public Use
  Company Number: CN-009507513-2103CHN003914

PATIENT
  Age: 16 Year
  Sex: Male
  Weight: 105 kg

DRUGS (9)
  1. KEYTRUDA [Suspect]
     Active Substance: PEMBROLIZUMAB
     Indication: IMMUNOMODULATORY THERAPY
     Dosage: 200 MILLIGRAM, QD
     Route: 041
     Dates: start: 20210227, end: 20210227
  2. KEYTRUDA [Suspect]
     Active Substance: PEMBROLIZUMAB
     Indication: NASOPHARYNGEAL CANCER
  3. CISPLATIN. [Suspect]
     Active Substance: CISPLATIN
     Dosage: 47 MILLIGRAM, QD
     Route: 041
     Dates: start: 20210306
  4. SODIUM CHLORIDE. [Concomitant]
     Active Substance: SODIUM CHLORIDE
     Dosage: 100 MILLILITER
     Route: 041
     Dates: start: 20210227, end: 20210227
  5. GEMZAR [Suspect]
     Active Substance: GEMCITABINE HYDROCHLORIDE
     Dosage: 2 GRAM, QD
     Route: 041
     Dates: start: 20210306
  6. SODIUM CHLORIDE. [Concomitant]
     Active Substance: SODIUM CHLORIDE
     Indication: MEDICATION DILUTION
     Dosage: 100 MILLILITER
     Route: 041
     Dates: start: 20210227, end: 20210227
  7. SODIUM CHLORIDE. [Concomitant]
     Active Substance: SODIUM CHLORIDE
     Dosage: 500 MILLILITER
     Route: 041
     Dates: start: 20210227, end: 20210228
  8. GEMZAR [Suspect]
     Active Substance: GEMCITABINE HYDROCHLORIDE
     Indication: NASOPHARYNGEAL CANCER
     Dosage: 2 GRAM, QD
     Route: 041
     Dates: start: 20210227, end: 20210227
  9. CISPLATIN. [Suspect]
     Active Substance: CISPLATIN
     Indication: NASOPHARYNGEAL CANCER
     Dosage: 47 MILLIGRAM, QD
     Route: 041
     Dates: start: 20210227, end: 20210228

REACTIONS (3)
  - Hyperpyrexia [Recovered/Resolved]
  - Product use in unapproved indication [Unknown]
  - Hyperpyrexia [Recovered/Resolved]

NARRATIVE: CASE EVENT DATE: 20210227
